FAERS Safety Report 23020266 (Version 1)
Quarter: 2023Q4

REPORT INFORMATION
  Report Type: Spontaneous
  Country: US (occurrence: None)
  Receive Date: 20231002
  Receipt Date: 20231002
  Transmission Date: 20240110
  Serious: No
  Sender: FDA-Public Use
  Company Number: None

PATIENT
  Sex: Female

DRUGS (2)
  1. NUCALA [Suspect]
     Active Substance: MEPOLIZUMAB
     Indication: Nasal polyps
     Dosage: FREQUENCY : MONTHLY;?
     Route: 058
     Dates: start: 202212
  2. DUPIXENT [Concomitant]
     Active Substance: DUPILUMAB

REACTIONS (2)
  - Drug ineffective [None]
  - Therapy cessation [None]
